FAERS Safety Report 17915599 (Version 1)
Quarter: 2020Q2

REPORT INFORMATION
  Report Type: Spontaneous
  Country: US (occurrence: US)
  Receive Date: 20200619
  Receipt Date: 20200619
  Transmission Date: 20200714
  Serious: No
  Sender: FDA-Public Use
  Company Number: US-GW PHARMA-202006USGW02168

PATIENT

DRUGS (3)
  1. EPIDIOLEX [Suspect]
     Active Substance: CANNABIDIOL
     Indication: EPILEPSY
  2. EPIDIOLEX [Suspect]
     Active Substance: CANNABIDIOL
     Indication: SIMPLE PARTIAL SEIZURES
  3. EPIDIOLEX [Suspect]
     Active Substance: CANNABIDIOL
     Indication: PARTIAL SEIZURES
     Dosage: 180 MILLIGRAM, BID
     Route: 048
     Dates: start: 20200224

REACTIONS (2)
  - Product use in unapproved indication [Unknown]
  - Seizure [Unknown]
